FAERS Safety Report 11743800 (Version 3)
Quarter: 2016Q2

REPORT INFORMATION
  Report Type: Report from Study
  Country: US (occurrence: US)
  Receive Date: 20151116
  Receipt Date: 20160517
  Transmission Date: 20160815
  Serious: Yes (Hospitalization)
  Sender: FDA-Public Use
  Company Number: US-UCBSA-2015036240

PATIENT
  Sex: Female
  Weight: 59 kg

DRUGS (3)
  1. CELEXA [Concomitant]
     Active Substance: CITALOPRAM HYDROBROMIDE
     Indication: DEPRESSION
     Dosage: UNK
     Dates: start: 201511
  2. VIMPAT [Suspect]
     Active Substance: LACOSAMIDE
     Indication: SEIZURE
     Dosage: 100 MG/4 TAB: 400 MG DAILY
     Dates: start: 201506
  3. LEVETIRACETAM. [Suspect]
     Active Substance: LEVETIRACETAM
     Indication: EPILEPSY
     Dosage: 500 MG /9 TAB: DAILY DOSE 4500 MG
     Dates: start: 2014

REACTIONS (10)
  - Mood swings [Recovered/Resolved]
  - Depression [Unknown]
  - Anxiety [Not Recovered/Not Resolved]
  - Abnormal behaviour [Recovering/Resolving]
  - Seizure [Unknown]
  - Anger [Recovering/Resolving]
  - Weight increased [Not Recovered/Not Resolved]
  - Off label use [Unknown]
  - Irritability [Recovered/Resolved]
  - Overdose [Unknown]

NARRATIVE: CASE EVENT DATE: 2015
